FAERS Safety Report 9869606 (Version 1)
Quarter: 2014Q1

REPORT INFORMATION
  Report Type: Spontaneous
  Country: GB (occurrence: None)
  Receive Date: 20140131
  Receipt Date: 20140131
  Transmission Date: 20141002
  Serious: Yes (Hospitalization)
  Sender: FDA-Public Use
  Company Number: AUR-APL-2014-00578

PATIENT
  Age: 69 Year
  Sex: Female

DRUGS (3)
  1. AMLODIPINE (AMLODIPINE) [Suspect]
     Indication: HYPERTENSION
     Dates: start: 20131214
  2. MYSOLINE (PRIMIDONE) [Suspect]
     Indication: CONVULSION
     Dosage: 250 MG 2 IN 1 D
     Route: 048
  3. LANSOPRAZOLE (LANSOPRAZOLE) [Suspect]

REACTIONS (2)
  - Grand mal convulsion [None]
  - Drug interaction [None]
